FAERS Safety Report 14445160 (Version 5)
Quarter: 2018Q4

REPORT INFORMATION
  Report Type: Spontaneous
  Country: US (occurrence: US)
  Receive Date: 20180126
  Receipt Date: 20181113
  Transmission Date: 20190204
  Serious: No
  Sender: FDA-Public Use
  Company Number: US-PFIZER INC-2018033136

PATIENT
  Age: 65 Year
  Sex: Female
  Weight: 69 kg

DRUGS (4)
  1. IBRANCE [Suspect]
     Active Substance: PALBOCICLIB
     Dosage: 100 MG, UNK
  2. IBRANCE [Suspect]
     Active Substance: PALBOCICLIB
     Dosage: 125 MG, CYCLIC (STAY OFF FOR 2 WEEKS)
     Route: 048
  3. IBRANCE [Suspect]
     Active Substance: PALBOCICLIB
     Dosage: 350 MG, SINGLE (TOOK TWO OF THE 125 MG PALBOCICLIB WITH THE 100 MG)
  4. IBRANCE [Suspect]
     Active Substance: PALBOCICLIB
     Indication: BREAST CANCER METASTATIC
     Dosage: 125 MG, CYCLIC (21 DAYS ON AND SEVEN DAYS OFF)
     Route: 048

REACTIONS (5)
  - Incorrect dose administered [Unknown]
  - Feeling abnormal [Unknown]
  - Urinary tract infection [Unknown]
  - Full blood count decreased [Recovered/Resolved]
  - Burnout syndrome [Unknown]
